FAERS Safety Report 18902301 (Version 3)
Quarter: 2021Q2

REPORT INFORMATION
  Report Type: Spontaneous
  Country: JP (occurrence: JP)
  Receive Date: 20210216
  Receipt Date: 20210413
  Transmission Date: 20210717
  Serious: Yes (Death, Hospitalization)
  Sender: FDA-Public Use
  Company Number: JP-JNJFOC-20210226576

PATIENT
  Age: 62 Year
  Sex: Male

DRUGS (11)
  1. OXYGEN. [Concomitant]
     Active Substance: OXYGEN
     Route: 055
  2. SELARA [Concomitant]
     Active Substance: EPLERENONE
     Indication: RIGHT VENTRICULAR FAILURE
     Route: 048
     Dates: end: 20170802
  3. OPSUMIT [Suspect]
     Active Substance: MACITENTAN
     Indication: PULMONARY ARTERIAL HYPERTENSION
     Dosage: DOSE UNKNOWN
     Route: 048
     Dates: start: 20160622, end: 20170802
  4. EPOPROSTENOL [EPOPROSTENOL SODIUM] [Concomitant]
     Active Substance: EPOPROSTENOL SODIUM
     Indication: PULMONARY ARTERIAL HYPERTENSION
     Dosage: 0.5?9.7NG/KG/MIN
     Route: 041
     Dates: start: 20160725, end: 20161001
  5. PROSTAGLANDIN F2ALPHA [Concomitant]
     Active Substance: DINOPROST
     Dosage: DOSE UNKNOWN
     Route: 065
  6. DIART [Concomitant]
     Active Substance: AZOSEMIDE
     Indication: RIGHT VENTRICULAR FAILURE
     Route: 048
     Dates: end: 20170802
  7. ADCIRCA [Concomitant]
     Active Substance: TADALAFIL
     Indication: PULMONARY ARTERIAL HYPERTENSION
     Route: 048
     Dates: end: 20170802
  8. FUROSEMIDE. [Concomitant]
     Active Substance: FUROSEMIDE
     Indication: RIGHT VENTRICULAR FAILURE
     Route: 048
     Dates: end: 20170802
  9. SAMSCA [Concomitant]
     Active Substance: TOLVAPTAN
     Indication: RIGHT VENTRICULAR FAILURE
     Route: 048
     Dates: start: 20161114, end: 20170802
  10. PIMOBENDAN [Concomitant]
     Active Substance: PIMOBENDAN
     Indication: RIGHT VENTRICULAR FAILURE
     Route: 048
     Dates: start: 20160902, end: 20170802
  11. TREPROST [Concomitant]
     Active Substance: TREPROSTINIL
     Indication: PULMONARY ARTERIAL HYPERTENSION
     Dosage: 3.4?22.7NG/KG/MIN
     Route: 041
     Dates: start: 20160926, end: 20170802

REACTIONS (3)
  - Colon cancer [Recovering/Resolving]
  - Right ventricular failure [Fatal]
  - Pulmonary arterial hypertension [Fatal]

NARRATIVE: CASE EVENT DATE: 20160717
